FAERS Safety Report 22606780 (Version 2)
Quarter: 2024Q2

REPORT INFORMATION
  Report Type: Spontaneous
  Country: NO (occurrence: NO)
  Receive Date: 20230615
  Receipt Date: 20240515
  Transmission Date: 20240716
  Serious: Yes (Hospitalization)
  Sender: FDA-Public Use
  Company Number: NO-NALPROPION PHARMACEUTICALS INC.-NO-2023CUR002328

PATIENT
  Age: 23 Year
  Sex: Female

DRUGS (1)
  1. BUPROPION HYDROCHLORIDE\NALTREXONE HYDROCHLORIDE [Suspect]
     Active Substance: BUPROPION HYDROCHLORIDE\NALTREXONE HYDROCHLORIDE
     Indication: Overweight
     Dosage: STRENGTH 8/90 MG, TWO TABLETS TWICE A DAY
     Route: 048
     Dates: start: 20230501, end: 20230531

REACTIONS (2)
  - Procedural pain [Recovering/Resolving]
  - Inhibitory drug interaction [Recovering/Resolving]

NARRATIVE: CASE EVENT DATE: 20230531
